FAERS Safety Report 10024986 (Version 1)
Quarter: 2014Q1

REPORT INFORMATION
  Report Type: Spontaneous
  Country: US (occurrence: RS)
  Receive Date: 20140320
  Receipt Date: 20140320
  Transmission Date: 20141002
  Serious: Yes (Hospitalization)
  Sender: FDA-Public Use
  Company Number: RS-FRI-1000064619

PATIENT
  Age: 60 Year
  Sex: Male
  Weight: 80 kg

DRUGS (7)
  1. ROFLUMILAST [Suspect]
     Indication: CHRONIC OBSTRUCTIVE PULMONARY DISEASE
     Dosage: 500 MG
     Route: 048
     Dates: start: 201305, end: 201308
  2. PRONISON [Concomitant]
  3. SYMBICORT [Concomitant]
  4. SPIRIVA [Concomitant]
  5. BERODUAL [Concomitant]
  6. KEPPRA [Concomitant]
  7. ATACOR [Concomitant]

REACTIONS (3)
  - Dehydration [Recovered/Resolved]
  - Electrolyte imbalance [Recovered/Resolved]
  - Weight decreased [Recovered/Resolved]
